FAERS Safety Report 5816022-X (Version None)
Quarter: 2008Q3

REPORT INFORMATION
  Report Type: 
  Country: None (occurrence: None)
  Receive Date: 20080721
  Receipt Date: 20080714
  Transmission Date: 20090109
  Serious: Yes (Hospitalization)
  Sender: FDA-Public Use
  Company Number: PHHY2008SE13897

PATIENT
  Sex: Male

DRUGS (1)
  1. LAMISIL [Suspect]
     Indication: FUNGAL INFECTION
     Dosage: UNK
     Dates: start: 20080310, end: 20080320

REACTIONS (3)
  - HAEMOLYTIC ANAEMIA [None]
  - MALAISE [None]
  - SICKLE CELL ANAEMIA [None]
